FAERS Safety Report 8606988-7 (Version None)
Quarter: 2012Q3

REPORT INFORMATION
  Report Type: 
  Country: None (occurrence: None)
  Receive Date: 20120820
  Receipt Date: 20120815
  Transmission Date: 20120928
  Serious: Yes (Disabling, Other)
  Sender: FDA-Public Use
  Company Number: US-PFIZER INC-2012200580

PATIENT
  Age: 102 Year
  Sex: Female
  Weight: 51.247 kg

DRUGS (3)
  1. ZITHROMAX [Suspect]
     Indication: EAR DISORDER
     Dosage: UNK
     Dates: start: 20120809, end: 20120812
  2. NITRO-DUR [Concomitant]
     Dosage: UNK
  3. DIOVAN [Concomitant]
     Indication: BLOOD PRESSURE ABNORMAL
     Dosage: 320/12.5MG DAILY

REACTIONS (2)
  - BLINDNESS [None]
  - ACTIVITIES OF DAILY LIVING IMPAIRED [None]
